FAERS Safety Report 4747769-4 (Version None)
Quarter: 2005Q3

REPORT INFORMATION
  Report Type: 
  Country: None (occurrence: None)
  Receive Date: 20050816
  Receipt Date: 20050805
  Transmission Date: 20060218
  Serious: Yes (Other)
  Sender: FDA-Public Use
  Company Number: 2005-DE-03078GD

PATIENT
  Age: 46 Year
  Sex: Male

DRUGS (5)
  1. IBUPROFEN [Suspect]
  2. OXYCODONE HCL AND ACETAMINOPHEN [Suspect]
  3. NITISINONE (NITISINONE) [Suspect]
     Indication: ALKAPTONURIA
     Dosage: 700 MCG (NR, BID), PO
     Route: 048
  4. LOVASTATIN [Suspect]
  5. OMEPRAZOLE [Suspect]

REACTIONS (7)
  - ALANINE AMINOTRANSFERASE INCREASED [None]
  - ASPARTATE AMINOTRANSFERASE INCREASED [None]
  - CONDITION AGGRAVATED [None]
  - GAMMA-GLUTAMYLTRANSFERASE INCREASED [None]
  - HEPATOCELLULAR DAMAGE [None]
  - HEPATOTOXICITY [None]
  - TRANSAMINASES INCREASED [None]
